FAERS Safety Report 9246358 (Version 1)
Quarter: 2013Q2

REPORT INFORMATION
  Report Type: Spontaneous
  Country: US (occurrence: US)
  Receive Date: 20130422
  Receipt Date: 20130422
  Transmission Date: 20140414
  Serious: No
  Sender: FDA-Public Use
  Company Number: US-B.I. PHARMACEUTICALS,INC./RIDGEFIELD-2013-BI-09898BP

PATIENT
  Age: 62 Year
  Sex: Female
  Weight: 116 kg

DRUGS (2)
  1. MICARDIS HCT TABLETS [Suspect]
     Indication: HYPERTENSION
     Route: 048
     Dates: start: 200901, end: 201304
  2. INSULIN [Concomitant]
     Indication: DIABETES MELLITUS

REACTIONS (1)
  - Drug effect decreased [Not Recovered/Not Resolved]
